FAERS Safety Report 5196134-7 (Version None)
Quarter: 2006Q4

REPORT INFORMATION
  Report Type: 
  Country: None (occurrence: None)
  Receive Date: 20061220
  Receipt Date: 20061212
  Transmission Date: 20070319
  Serious: Yes (Life-Threatening)
  Sender: FDA-Public Use
  Company Number: 2006-151761-NL

PATIENT
  Age: 24 Month
  Sex: Male

DRUGS (4)
  1. VECURONIUM BROMIDE [Suspect]
     Indication: HYPOTONIA
     Dosage: INTRAVENOUS (NOS)
     Route: 042
  2. NEOSTIGMINE [Concomitant]
  3. ATROPINE [Concomitant]
  4. SEVOFLURANE [Concomitant]

REACTIONS (7)
  - APNOEA [None]
  - BLOOD GLUCOSE INCREASED [None]
  - BRADYCARDIA [None]
  - BRONCHOSPASM [None]
  - DELAYED RECOVERY FROM ANAESTHESIA [None]
  - METABOLIC ACIDOSIS [None]
  - POOR PERIPHERAL CIRCULATION [None]
